FAERS Safety Report 5728234-4 (Version None)
Quarter: 2008Q2

REPORT INFORMATION
  Report Type: 
  Country: None (occurrence: None)
  Receive Date: 20080505
  Receipt Date: 20080505
  Transmission Date: 20081010
  Serious: Yes (Other)
  Sender: FDA-Public Use
  Company Number: None

PATIENT
  Age: 37 Year
  Sex: Female
  Weight: 60.782 kg

DRUGS (2)
  1. ATENOLOL [Suspect]
     Indication: PALPITATIONS
     Dosage: 25 MG QD PO
     Route: 048
     Dates: start: 20070823, end: 20071207
  2. METOPROLOL SUCCINATE EXTENDED RELEASE [Suspect]
     Indication: PALPITATIONS
     Dosage: 25 MG QD PO
     Route: 048
     Dates: start: 20071207

REACTIONS (1)
  - PALPITATIONS [None]
